FAERS Safety Report 17577243 (Version 2)
Quarter: 2020Q1

REPORT INFORMATION
  Report Type: Spontaneous
  Country: GB (occurrence: GB)
  Receive Date: 20200324
  Receipt Date: 20200327
  Transmission Date: 20200409
  Serious: Yes (Other)
  Sender: FDA-Public Use
  Company Number: GB-TEVA-2020-GB-1206811

PATIENT
  Age: 61 Year
  Sex: Female
  Weight: 80 kg

DRUGS (4)
  1. MULTIVITAMIN [Concomitant]
     Active Substance: VITAMINS
  2. ESTRIOL [Concomitant]
     Active Substance: ESTRIOL
  3. CHLORAMPHENICOL [Suspect]
     Active Substance: CHLORAMPHENICOL
     Indication: ADENOVIRUS INFECTION
     Dosage: 8 GTT
     Route: 047
     Dates: start: 20191102, end: 20191107
  4. OMEPRAZOLE. [Concomitant]
     Active Substance: OMEPRAZOLE

REACTIONS (5)
  - Photosensitivity reaction [Recovered/Resolved with Sequelae]
  - Allergic reaction to excipient [Unknown]
  - Lacrimation increased [Recovered/Resolved with Sequelae]
  - Blister [Recovered/Resolved with Sequelae]
  - Vision blurred [Recovered/Resolved with Sequelae]

NARRATIVE: CASE EVENT DATE: 20191103
